FAERS Safety Report 9866898 (Version 1)
Quarter: 2014Q1

REPORT INFORMATION
  Report Type: Spontaneous
  Country: US (occurrence: None)
  Receive Date: 20140131
  Receipt Date: 20140131
  Transmission Date: 20141002
  Serious: Yes (Hospitalization)
  Sender: FDA-Public Use
  Company Number: 3004548776-2014-00001

PATIENT
  Sex: Female

DRUGS (1)
  1. ANTICOAGULANT CITRATE DEXTROSE SOLUTION, 4B7898Q [Suspect]
     Indication: CYTAPHERESIS
     Dosage: USE WITH CYTAPHERESIS

REACTIONS (6)
  - Abdominal discomfort [None]
  - Urticaria [None]
  - Chest pain [None]
  - Drug interaction [None]
  - Off label use [None]
  - Product quality issue [None]
